FAERS Safety Report 5314387-9 (Version None)
Quarter: 2007Q1

REPORT INFORMATION
  Report Type: 
  Country: None (occurrence: None)
  Receive Date: 20070130
  Receipt Date: 20051202
  Transmission Date: 20070707
  Serious: Yes (Other)
  Sender: FDA-Public Use
  Company Number: 143898USA

PATIENT
  Age: 51 Year
  Sex: Male

DRUGS (8)
  1. COPAXONE [Suspect]
     Indication: MULTIPLE SCLEROSIS
     Dosage: 20 MG (20 MG, ONCE A DAY), SUBCUTANEOUS
     Route: 058
     Dates: end: 20051130
  2. DUONEBS [Concomitant]
  3. CHLORHEXIDINE GLUCONATE [Concomitant]
  4. FENTANYL [Concomitant]
  5. INSULIN [Concomitant]
  6. METHYLPREDNISOLONE SODIUM SUCCINATE [Concomitant]
  7. BETAMETHASONE DIPROPIONATE [Concomitant]
  8. PROTONIX [Concomitant]

REACTIONS (2)
  - PNEUMONIA ASPIRATION [None]
  - PYREXIA [None]
